FAERS Safety Report 6942318-4 (Version None)
Quarter: 2010Q3

REPORT INFORMATION
  Report Type: 
  Country: None (occurrence: None)
  Receive Date: 20100819
  Receipt Date: 20100804
  Transmission Date: 20110219
  Serious: Yes (Other)
  Sender: FDA-Public Use
  Company Number: IDA-00402

PATIENT
  Age: 3 Year
  Sex: 0

DRUGS (1)
  1. PROPRANOLOL [Suspect]
     Dosage: DAILY ORAL
     Route: 048

REACTIONS (4)
  - ACCIDENTAL DRUG INTAKE BY CHILD [None]
  - HYPERHIDROSIS [None]
  - HYPOGLYCAEMIA [None]
  - SOMNOLENCE [None]
